FAERS Safety Report 13162744 (Version 4)
Quarter: 2017Q2

REPORT INFORMATION
  Report Type: Report from Study
  Country: JP (occurrence: JP)
  Receive Date: 20170130
  Receipt Date: 20170523
  Transmission Date: 20170830
  Serious: Yes (Hospitalization)
  Sender: FDA-Public Use
  Company Number: JP-EISAI MEDICAL RESEARCH-EC-2016-017626

PATIENT
  Age: 80 Year
  Sex: Male
  Weight: 49 kg

DRUGS (2)
  1. HALAVEN [Suspect]
     Active Substance: ERIBULIN MESYLATE
     Route: 041
     Dates: start: 20160817, end: 20160817
  2. HALAVEN [Suspect]
     Active Substance: ERIBULIN MESYLATE
     Indication: SYNOVIAL SARCOMA
     Route: 041
     Dates: start: 20160525, end: 20160727

REACTIONS (3)
  - Neutropenia [Recovered/Resolved]
  - Bronchitis [Recovered/Resolved]
  - Leukopenia [Recovered/Resolved]

NARRATIVE: CASE EVENT DATE: 20160606
